FAERS Safety Report 9682158 (Version 2)
Quarter: 2013Q4

REPORT INFORMATION
  Report Type: Report from Study
  Country: GB (occurrence: GB)
  Receive Date: 20131111
  Receipt Date: 20131121
  Transmission Date: 20140711
  Serious: Yes (Death)
  Sender: FDA-Public Use
  Company Number: GB-ROCHE-1299669

PATIENT
  Age: 65 Year
  Sex: Female

DRUGS (6)
  1. BEVACIZUMAB [Suspect]
     Indication: BREAST CANCER
     Dosage: DATE OF MOST RECENT DOSE PRIOR TO EVENT 15/OCT/2013
     Route: 042
     Dates: start: 20131015
  2. SALBUTAMOL [Concomitant]
     Dosage: 2.5 - 5 MG
     Route: 065
  3. CLEXANE [Concomitant]
     Route: 065
  4. FUROSEMIDE [Concomitant]
     Route: 065
  5. ZOMORPH [Concomitant]
     Route: 065
  6. ORAMORPH [Concomitant]
     Dosage: 2.5 - 5 MG
     Route: 065

REACTIONS (1)
  - Pneumonia [Fatal]
